FAERS Safety Report 8438684-3 (Version None)
Quarter: 2012Q2

REPORT INFORMATION
  Report Type: 
  Country: None (occurrence: None)
  Receive Date: 20120615
  Receipt Date: 20120530
  Transmission Date: 20120825
  Serious: No
  Sender: FDA-Public Use
  Company Number: US-ASTRAZENECA-2011SE41551

PATIENT
  Age: 60 Year
  Sex: Female
  Weight: 90.7 kg

DRUGS (15)
  1. NEXIUM [Suspect]
     Indication: HIATUS HERNIA
     Dosage: TWICE A DAY
     Route: 048
     Dates: start: 20010101
  2. NEXIUM [Suspect]
     Route: 048
     Dates: start: 20010101, end: 20111201
  3. METFORMIN HCL [Concomitant]
     Indication: DIABETES MELLITUS
  4. GLIMEPIRIDE [Concomitant]
     Indication: DIABETES MELLITUS
  5. ALKASELTZER [Concomitant]
     Dosage: AS NEEDED
  6. NEXIUM [Suspect]
     Indication: GASTROOESOPHAGEAL REFLUX DISEASE
     Dosage: TWICE A DAY
     Route: 048
     Dates: start: 20010101
  7. OMNEPRAZOLE [Concomitant]
     Indication: HIATUS HERNIA
  8. VITAMIN D [Concomitant]
     Indication: VITAMIN D DEFICIENCY
  9. ALLEGRA [Concomitant]
     Indication: HYPERSENSITIVITY
  10. NEXIUM [Suspect]
     Route: 048
     Dates: start: 20010101, end: 20111201
  11. CALCIUM CARBONATE [Concomitant]
  12. OMNEPRAZOLE [Concomitant]
     Indication: GASTROOESOPHAGEAL REFLUX DISEASE
  13. RANITIDINE [Concomitant]
  14. BENAZ [Concomitant]
     Indication: HYPERTENSION
  15. CALCIUM [Concomitant]
     Indication: VITAMIN D DEFICIENCY

REACTIONS (6)
  - LOWER LIMB FRACTURE [None]
  - OSTEOPOROSIS [None]
  - FALL [None]
  - VITAMIN D DEFICIENCY [None]
  - CATARACT [None]
  - MULTIPLE FRACTURES [None]
